FAERS Safety Report 5280541-8 (Version None)
Quarter: 2007Q1

REPORT INFORMATION
  Report Type: 
  Country: None (occurrence: None)
  Receive Date: 20070329
  Receipt Date: 20070319
  Transmission Date: 20070707
  Serious: Yes (Hospitalization)
  Sender: FDA-Public Use
  Company Number: SEWYE117221MAR07

PATIENT
  Sex: Female

DRUGS (2)
  1. ENBREL [Suspect]
     Indication: RHEUMATOID ARTHRITIS
     Dosage: 50 MG
     Route: 058
     Dates: start: 20031126, end: 20070308
  2. METHOTREXATE [Concomitant]
     Dosage: NOT SPECIFIED
     Route: 048
     Dates: start: 20031126, end: 20070308

REACTIONS (1)
  - HIP ARTHROPLASTY [None]
